FAERS Safety Report 23968842 (Version 1)
Quarter: 2024Q2

REPORT INFORMATION
  Report Type: Spontaneous
  Country: PL (occurrence: PL)
  Receive Date: 20240612
  Receipt Date: 20240612
  Transmission Date: 20240716
  Serious: Yes (Other)
  Sender: FDA-Public Use
  Company Number: PL-AMGEN-POLSP2024112325

PATIENT
  Age: 58 Year
  Sex: Male

DRUGS (4)
  1. VECTIBIX [Suspect]
     Active Substance: PANITUMUMAB
     Indication: Gastrointestinal adenocarcinoma
     Dosage: UNK
     Route: 065
     Dates: start: 20231120
  2. LEUCOVORIN [Concomitant]
     Active Substance: LEUCOVORIN\LEUCOVORIN CALCIUM
     Indication: Gastrointestinal adenocarcinoma
     Dosage: UNK
     Dates: start: 20231120
  3. FLUOROURACIL [Concomitant]
     Active Substance: FLUOROURACIL
     Indication: Gastrointestinal adenocarcinoma
     Dosage: UNK
     Route: 065
     Dates: start: 20231120
  4. IRINOTECAN [Concomitant]
     Active Substance: IRINOTECAN
     Indication: Gastrointestinal adenocarcinoma
     Dosage: UNK
     Dates: start: 20231120

REACTIONS (5)
  - Neutropenia [Unknown]
  - Rash pustular [Recovering/Resolving]
  - Dyspnoea [Unknown]
  - Asthenia [Unknown]
  - Therapy partial responder [Unknown]
